FAERS Safety Report 14649441 (Version 2)
Quarter: 2018Q2

REPORT INFORMATION
  Report Type: Report from Study
  Country: US (occurrence: US)
  Receive Date: 20180316
  Receipt Date: 20180403
  Transmission Date: 20180711
  Serious: Yes (Hospitalization, Other)
  Sender: FDA-Public Use
  Company Number: US-TAKEDA-2018TUS006136

PATIENT
  Age: 62 Year
  Sex: Female

DRUGS (1)
  1. PONATINIB [Suspect]
     Active Substance: PONATINIB
     Indication: CHRONIC LYMPHOCYTIC LEUKAEMIA
     Dosage: 30 MG, QD
     Route: 048
     Dates: start: 201708

REACTIONS (15)
  - Atrial fibrillation [Unknown]
  - Haematocrit decreased [Unknown]
  - Pleural effusion [Unknown]
  - Lymphocyte count increased [Unknown]
  - Pulmonary embolism [Unknown]
  - White blood cell count decreased [Unknown]
  - Pericardial effusion [Unknown]
  - Platelet count decreased [Unknown]
  - Off label use [Unknown]
  - Deep vein thrombosis [Unknown]
  - Red blood cell count decreased [Unknown]
  - Haemoglobin decreased [Unknown]
  - Cardiac tamponade [Unknown]
  - Fatigue [Unknown]
  - Constipation [Unknown]

NARRATIVE: CASE EVENT DATE: 201708
